FAERS Safety Report 12647715 (Version 1)
Quarter: 2016Q3

REPORT INFORMATION
  Report Type: Spontaneous
  Country: US (occurrence: None)
  Receive Date: 20160811
  Receipt Date: 20160811
  Transmission Date: 20161109
  Serious: No
  Sender: FDA-Public Use
  Company Number: None

PATIENT
  Sex: Female

DRUGS (1)
  1. HUMIRA [Suspect]
     Active Substance: ADALIMUMAB
     Indication: CROHN^S DISEASE
     Dosage: 40MG EVERY 14 DAYS SQ
     Route: 058
     Dates: start: 20151023, end: 20160511

REACTIONS (4)
  - Injection site swelling [None]
  - Therapy cessation [None]
  - Injection site erythema [None]
  - Drug ineffective [None]
